FAERS Safety Report 22987415 (Version 3)
Quarter: 2023Q4

REPORT INFORMATION
  Report Type: Report from Study
  Country: US (occurrence: US)
  Receive Date: 20230926
  Receipt Date: 20231017
  Transmission Date: 20240109
  Serious: No
  Sender: FDA-Public Use
  Company Number: US-JAZZ PHARMACEUTICALS-2023-US-019795

PATIENT
  Age: 67 Year
  Sex: Female

DRUGS (18)
  1. LURBINECTEDIN [Suspect]
     Active Substance: LURBINECTEDIN
     Dosage: 4.4 MILLIGRAM, QD
     Route: 042
     Dates: start: 20230731
  2. LURBINECTEDIN [Suspect]
     Active Substance: LURBINECTEDIN
     Dosage: 4.4 MILLIGRAM, QD
     Route: 042
     Dates: start: 20230821
  3. COMPAZINE [Concomitant]
     Active Substance: PROCHLORPERAZINE MALEATE
     Dosage: 10 MILLIGRAM, Q6H
     Dates: start: 20230704
  4. REMENTA [Concomitant]
     Dosage: 15 MILLIGRAM, HS
     Route: 048
     Dates: start: 20230821
  5. PROVENTIL [Concomitant]
     Active Substance: ALBUTEROL
     Dosage: 2.5/3 MG NEB
  6. AUGMENTIN [Concomitant]
     Active Substance: AMOXICILLIN\CLAVULANATE POTASSIUM
     Dosage: 875/125MG BD
     Route: 048
     Dates: start: 20230901
  7. ASPIRIN [Concomitant]
     Active Substance: ASPIRIN
     Dosage: 8 MILLIGRAM, QD
     Route: 048
  8. LIPITOR [Concomitant]
     Active Substance: ATORVASTATIN CALCIUM
     Dosage: 80 MILLIGRAM, QD
     Route: 048
     Dates: start: 20230908
  9. GLUCOSAMINE SULFATE [Concomitant]
     Active Substance: GLUCOSAMINE SULFATE
     Dosage: 10 MILLIGRAM, TID
     Route: 048
  10. DICLOFENAC [Concomitant]
     Active Substance: DICLOFENAC
     Dosage: 75 MILLIGRAM, BID
     Route: 048
  11. PREMARIN [Concomitant]
     Active Substance: ESTROGENS, CONJUGATED
     Dosage: 4 MILLIGRAM, QD
     Route: 048
  12. NEURONTIN [Concomitant]
     Active Substance: GABAPENTIN
     Dosage: 100 MILLIGRAM, TID
     Route: 048
  13. MENTHOL [Concomitant]
     Active Substance: MENTHOL
     Dosage: 100 MILLIGARM/5 MILLILITER
     Route: 048
     Dates: start: 20230901
  14. NORCO [Concomitant]
     Active Substance: ACETAMINOPHEN\HYDROCODONE BITARTRATE
     Dosage: 10-325 MG Q8PRN
     Route: 048
     Dates: start: 20221121
  15. ATIVAN [Concomitant]
     Active Substance: LORAZEPAM
     Dosage: 0.5 MILLIGRAM
     Route: 048
     Dates: start: 20230919
  16. OMEPRAZOLE [Concomitant]
     Active Substance: OMEPRAZOLE
     Dosage: 40 MILLIGRAM, QD
     Route: 048
     Dates: start: 20230922
  17. DYAZIDE [Concomitant]
     Active Substance: HYDROCHLOROTHIAZIDE\TRIAMTERENE
     Dosage: 37.5-25MG BID
     Route: 048
     Dates: start: 20230612
  18. MAGNESIUM OXIDE [Concomitant]
     Active Substance: MAGNESIUM OXIDE
     Dosage: 40 MILLIGRAM, BID
     Route: 048
     Dates: start: 20230612

REACTIONS (1)
  - Hepatic enzyme increased [Not Recovered/Not Resolved]

NARRATIVE: CASE EVENT DATE: 20230909
